FAERS Safety Report 5649845-0 (Version None)
Quarter: 2008Q1

REPORT INFORMATION
  Report Type: 
  Country: None (occurrence: None)
  Receive Date: 20080304
  Receipt Date: 20080222
  Transmission Date: 20080703
  Serious: Yes (Disabling)
  Sender: FDA-Public Use
  Company Number: GB-PFIZER INC-2008018131

PATIENT
  Age: 40 Year
  Sex: Female
  Weight: 52.6 kg

DRUGS (4)
  1. LYRICA [Suspect]
     Indication: PAIN
     Route: 048
  2. AMITRIPTYLINE HCL [Concomitant]
     Route: 048
  3. CO-CODAMOL [Concomitant]
     Route: 048
  4. DIAZEPAM [Concomitant]
     Route: 048

REACTIONS (6)
  - AGGRESSION [None]
  - EAR PAIN [None]
  - HOMICIDAL IDEATION [None]
  - MOOD SWINGS [None]
  - SYNCOPE [None]
  - WEIGHT INCREASED [None]
